FAERS Safety Report 8630266 (Version 3)
Quarter: 2012Q4

REPORT INFORMATION
  Report Type: Report from Study
  Country: IT (occurrence: IT)
  Receive Date: 20120622
  Receipt Date: 20120912
  Transmission Date: 20130627
  Serious: Yes (Death, Hospitalization)
  Sender: FDA-Public Use
  Company Number: IT-BAYER-2012-060214

PATIENT
  Age: 74 Year
  Sex: Female
  Weight: 70 kg

DRUGS (16)
  1. SORAFENIB [Suspect]
     Indication: METASTATIC RENAL CELL CARCINOMA
     Dosage: 800 mg daily
     Route: 048
     Dates: start: 20100719, end: 20100722
  2. PORTALAC [Concomitant]
     Dosage: 10 g daily
     Route: 048
  3. PAROXETINE HYDROCHLORIDE [Concomitant]
     Dosage: 10 mg daily
     Route: 048
  4. ZYLORIC [Concomitant]
     Dosage: 100 mg daily
     Route: 048
  5. TRIATEC [Concomitant]
     Dosage: 2.5 mg daily
     Route: 048
  6. METOPROLOL [Concomitant]
     Dosage: 100 mg daily
     Route: 048
     Dates: start: 20070221
  7. MODURETIC [Concomitant]
     Dosage: 55 mg two a week
     Route: 048
  8. HUMATIN [Concomitant]
     Dosage: 1000 mg at month
     Route: 048
  9. AMOXICILINA [Concomitant]
     Dosage: 3 g daily
     Route: 048
     Dates: start: 20100724, end: 20100727
  10. AMOXICILINA [Concomitant]
     Dosage: 1 g ,only a day
     Route: 048
     Dates: start: 20100805, end: 20100805
  11. CLEXANE [Concomitant]
     Dosage: 6000 IU ^only a day^
     Route: 042
     Dates: start: 20100805, end: 20100805
  12. CLEXANE [Concomitant]
     Dosage: 6000 IU twice a day
     Route: 042
     Dates: start: 20100814
  13. CEFOTAXIME [Concomitant]
     Dosage: 2 g daily
     Route: 042
     Dates: start: 20100805, end: 20100813
  14. URSOBIL [Concomitant]
     Dosage: 300 mg, BID
     Route: 048
     Dates: start: 20100805, end: 20100813
  15. SANDOSTATINA [Concomitant]
     Dosage: 1 ml daily
     Route: 042
     Dates: start: 20100805, end: 20100813
  16. DEURSIL [Suspect]
     Dosage: 300 mg daily
     Route: 048
     Dates: start: 20100814

REACTIONS (3)
  - Cholecystitis [Recovered/Resolved]
  - Pulmonary embolism [Recovered/Resolved]
  - Pyrexia [Recovered/Resolved]
